FAERS Safety Report 17109751 (Version 1)
Quarter: 2019Q4

REPORT INFORMATION
  Report Type: Spontaneous
  Country: GB (occurrence: GB)
  Receive Date: 20191204
  Receipt Date: 20191204
  Transmission Date: 20200122
  Serious: Yes (Death, Life-Threatening, Hospitalization, Other)
  Sender: FDA-Public Use
  Company Number: GB-BRISTOL-MYERS SQUIBB COMPANY-BMS-2019-114903

PATIENT
  Age: 81 Year
  Sex: Female
  Weight: 45 kg

DRUGS (14)
  1. CLOPIDOGREL BISULFATE. [Suspect]
     Active Substance: CLOPIDOGREL BISULFATE
     Indication: TRANSIENT ISCHAEMIC ATTACK
     Dosage: 75 MILLIGRAM,14 DAY COURSE
     Route: 048
     Dates: end: 20190525
  2. OMEPRAZOLE. [Concomitant]
     Active Substance: OMEPRAZOLE
     Indication: DYSPEPSIA
     Dosage: 20 MILLIGRAM, DAILY
     Route: 048
     Dates: start: 201903
  3. APIXABAN [Suspect]
     Active Substance: APIXABAN
     Indication: CEREBROVASCULAR ACCIDENT PROPHYLAXIS
     Dosage: 10 MILLIGRAM, DAILY
     Route: 048
     Dates: end: 20190524
  4. ATORVASTATIN [Concomitant]
     Active Substance: ATORVASTATIN
     Indication: TRANSIENT ISCHAEMIC ATTACK
     Dosage: 20 MILLIGRAM, DAILY
     Route: 048
     Dates: start: 201811
  5. BRALTUS [Concomitant]
     Active Substance: TIOTROPIUM BROMIDE
     Indication: CHRONIC OBSTRUCTIVE PULMONARY DISEASE
     Dosage: 10 MICROGRAM, DAILY
     Route: 065
     Dates: start: 201903
  6. ADCAL D3 [Concomitant]
     Active Substance: CALCIUM CARBONATE\CHOLECALCIFEROL
     Indication: SPINAL COMPRESSION FRACTURE
     Dosage: 2 DOSAGE FORM, DAILY
     Route: 048
     Dates: start: 201906
  7. AQUEOUS [SOFT SOAP] [Concomitant]
     Indication: PRODUCT USED FOR UNKNOWN INDICATION
     Dosage: 1 DOSAGE FORM, AS NECESSARY (SOAP SUBSTITUTE)
     Route: 061
     Dates: start: 201902, end: 201903
  8. DUORESP SPIROMAX [Concomitant]
     Active Substance: BUDESONIDE\FORMOTEROL
     Indication: CHRONIC OBSTRUCTIVE PULMONARY DISEASE
     Dosage: 2 DOSAGE FORM, DAILY(320/9)
     Route: 055
     Dates: start: 201903
  9. HYDROMOL [EMULSIFYING WAX;PARAFFIN SOFT] [Concomitant]
     Indication: DERMATITIS
     Dosage: 2 DOSAGE FORM, DAILY
     Route: 061
     Dates: start: 201902, end: 201903
  10. PARACETAMOL [Concomitant]
     Active Substance: ACETAMINOPHEN
     Indication: PAIN
     Dosage: 4 GRAM, DAILY
     Route: 048
     Dates: start: 201902, end: 201903
  11. CARVEDILOL. [Concomitant]
     Active Substance: CARVEDILOL
     Indication: CARDIAC PACEMAKER INSERTION
     Dosage: 12.5 MILLIGRAM, DAILY
     Route: 048
     Dates: start: 201811
  12. ALENDRONIC ACID [Concomitant]
     Active Substance: ALENDRONIC ACID
     Indication: SPINAL COMPRESSION FRACTURE
     Dosage: 70 MILLIGRAM, QWK
     Route: 048
     Dates: start: 201906
  13. DIGOXIN. [Concomitant]
     Active Substance: DIGOXIN
     Indication: ATRIAL FIBRILLATION
     Dosage: 125 MICROGRAM, DAILY
     Route: 048
     Dates: start: 201906
  14. ZOPICLONE [Concomitant]
     Active Substance: ZOPICLONE
     Indication: INSOMNIA
     Dosage: 7.5 MILLIGRAM, DAILY (AT NIGHT)
     Route: 048
     Dates: start: 201903

REACTIONS (6)
  - Intracranial pressure increased [Unknown]
  - Cerebral ventricle dilatation [Unknown]
  - Hydrocephalus [Unknown]
  - Basal ganglia haemorrhage [Fatal]
  - Brain oedema [Unknown]
  - Hypoaesthesia [Unknown]

NARRATIVE: CASE EVENT DATE: 20190610
